FAERS Safety Report 14626317 (Version 2)
Quarter: 2018Q1

REPORT INFORMATION
  Report Type: Spontaneous
  Country: ZA (occurrence: ZA)
  Receive Date: 20180312
  Receipt Date: 20180327
  Transmission Date: 20180509
  Serious: Yes (Other)
  Sender: FDA-Public Use
  Company Number: ZA-BRACCO-2018ZA01177

PATIENT
  Age: 44 Year
  Sex: Female

DRUGS (2)
  1. JOPAMIRON 370 [Suspect]
     Active Substance: IOPAMIDOL
     Indication: ANGIOGRAM
     Dosage: 100 ML, SINGLE
     Route: 042
     Dates: start: 20180227, end: 20180227
  2. SOLU-CORTEF [Concomitant]
     Active Substance: HYDROCORTISONE SODIUM SUCCINATE
     Indication: PREMEDICATION
     Dosage: 100 MG, BID
     Route: 042
     Dates: start: 20180223, end: 201802

REACTIONS (1)
  - Hypersensitivity [Recovered/Resolved]

NARRATIVE: CASE EVENT DATE: 20180227
